FAERS Safety Report 10863909 (Version 2)
Quarter: 2015Q1

REPORT INFORMATION
  Report Type: Spontaneous
  Country: JP (occurrence: JP)
  Receive Date: 20150223
  Receipt Date: 20150224
  Transmission Date: 20150721
  Serious: Yes (Other)
  Sender: FDA-Public Use
  Company Number: JP-GLAXOSMITHKLINE-JP2015JPN021010

PATIENT

DRUGS (2)
  1. ZEFIX [Suspect]
     Active Substance: LAMIVUDINE
     Indication: HEPATITIS B
     Route: 048
  2. HEPSERA [Suspect]
     Active Substance: ADEFOVIR DIPIVOXIL
     Indication: HEPATITIS B
     Route: 048

REACTIONS (1)
  - Renal impairment [Unknown]
